FAERS Safety Report 6772573-5 (Version None)
Quarter: 2010Q2

REPORT INFORMATION
  Report Type: 
  Country: None (occurrence: None)
  Receive Date: 20100616
  Receipt Date: 20091130
  Transmission Date: 20101027
  Serious: No
  Sender: FDA-Public Use
  Company Number: US-ASTRAZENECA-2009SE29625

PATIENT
  Age: 54 Year
  Sex: Female
  Weight: 54.4 kg

DRUGS (3)
  1. PULMICORT FLEXHALER [Suspect]
     Indication: ASTHMA
     Dosage: 1 PUFF BID
     Route: 055
  2. MAXAIR [Concomitant]
  3. PREVACID [Concomitant]

REACTIONS (1)
  - CHEST DISCOMFORT [None]
